FAERS Safety Report 8837373 (Version 1)
Quarter: 2012Q4

REPORT INFORMATION
  Report Type: 
  Country: DE (occurrence: DE)
  Receive Date: 20121012
  Receipt Date: 20121012
  Transmission Date: 20130627
  Serious: Yes (Death)
  Sender: FDA-Public Use
  Company Number: DE-PFIZER INC-A101203

PATIENT
  Age: 68 Year
  Sex: Female
  Weight: 70 kg

DRUGS (40)
  1. FLUCONAZOLE [Suspect]
     Indication: SEPSIS
     Dosage: DAILY
     Route: 048
     Dates: start: 19981223, end: 19981223
  2. DILTIAZEM HCL [Suspect]
     Indication: AORTIC VALVE INCOMPETENCE
     Route: 048
     Dates: start: 19981211
  3. FUROSEMIDE [Suspect]
     Indication: CARDIAC FAILURE
     Dates: start: 19981222, end: 19981222
  4. FUROSEMIDE [Suspect]
     Indication: CARDIAC FAILURE
     Dosage: DAILY
     Route: 042
     Dates: start: 19981221
  5. TAZOBAC [Suspect]
     Indication: SEPSIS
     Route: 042
     Dates: start: 19981231, end: 19981231
  6. HEPARIN SODIUM [Suspect]
     Indication: THROMBOSIS PROPHYLAXIS
     Route: 042
     Dates: start: 19981216, end: 19981217
  7. HEPARIN SODIUM [Suspect]
     Route: 042
     Dates: start: 19981219, end: 19981219
  8. HEPARIN SODIUM [Suspect]
     Route: 042
     Dates: start: 19981221
  9. ZIENAM [Suspect]
     Indication: SEPSIS
     Route: 042
     Dates: start: 19981217, end: 19981218
  10. ZIENAM [Suspect]
     Dates: start: 19981221, end: 19981230
  11. KALINOR [Suspect]
     Indication: HYPOKALAEMIA
     Route: 048
     Dates: start: 19981219, end: 19981219
  12. HUMANALBUMIN [Suspect]
     Indication: ILL-DEFINED DISORDER
     Route: 042
     Dates: start: 19981220, end: 19981220
  13. HUMANALBUMIN [Suspect]
     Dates: start: 19981222, end: 19981225
  14. KONAKION [Suspect]
     Indication: ILL-DEFINED DISORDER
     Route: 042
     Dates: start: 19981221, end: 19981222
  15. RESONIUM A [Suspect]
     Indication: HYPERKALAEMIA
     Route: 048
     Dates: start: 19981221, end: 19981223
  16. DIGIMERCK [Suspect]
     Indication: CARDIAC FAILURE
     Route: 048
     Dates: start: 19981222
  17. DUSODRIL [Suspect]
     Indication: ILL-DEFINED DISORDER
     Route: 048
     Dates: start: 19981223, end: 19981229
  18. BALDRIPARAN [Suspect]
     Indication: RESTLESSNESS
     Route: 048
     Dates: start: 19981225, end: 19981225
  19. ANTRA [Suspect]
     Indication: STOMA CARE
     Route: 048
     Dates: start: 19981231, end: 19981231
  20. CIBADREX [Suspect]
     Indication: HYPERTENSION
     Route: 048
     Dates: end: 19981207
  21. CIBADREX [Suspect]
     Dates: start: 19981213, end: 19981217
  22. ROCEPHIN [Suspect]
     Indication: SEPSIS
     Route: 048
     Dates: start: 19981207, end: 19981215
  23. ERYTHROMYCIN [Suspect]
     Indication: SEPSIS
     Route: 042
     Dates: start: 19981221, end: 19981227
  24. STANGYL [Suspect]
     Indication: ILL-DEFINED DISORDER
     Route: 048
     Dates: end: 19981217
  25. DORMICUM [Suspect]
     Indication: RESTLESSNESS
     Route: 048
     Dates: start: 19981210, end: 19981210
  26. DORMICUM [Suspect]
     Dates: start: 19981218, end: 19981218
  27. VANCOMYCIN [Suspect]
     Indication: SEPSIS
     Route: 042
     Dates: start: 19981221, end: 19981223
  28. VANCOMYCIN [Suspect]
     Dates: start: 19981229, end: 19981230
  29. NATRIUMCHLORID [Concomitant]
     Route: 048
     Dates: start: 19981222, end: 19981223
  30. HUMAN RED BLOOD CELLS [Concomitant]
     Route: 042
     Dates: start: 19981224
  31. RULID [Concomitant]
     Indication: SEPSIS
     Route: 048
     Dates: start: 19981227
  32. PHENPROCUMON [Concomitant]
     Dates: end: 19981217
  33. LANSOPRAZOLE [Concomitant]
     Dates: end: 19981214
  34. PHYTOMENADIONE [Concomitant]
     Dates: start: 19981208, end: 19981209
  35. LACTULOSE [Concomitant]
     Dates: start: 19981217, end: 19981217
  36. PARACETAMOL [Concomitant]
     Dates: start: 19981209, end: 19981209
  37. PIRETANIDE [Concomitant]
     Dates: start: 19981211, end: 19981217
  38. SPIRONOLACTONE [Concomitant]
     Dates: start: 19981214, end: 19981217
  39. PANTOPRAZOLE SODIUM [Concomitant]
     Dates: start: 19981214, end: 19981216
  40. HEPARIN [Concomitant]
     Route: 058
     Dates: start: 19981210, end: 19981212

REACTIONS (3)
  - Toxic epidermal necrolysis [Fatal]
  - Sepsis [Fatal]
  - Stevens-Johnson syndrome [Fatal]
